FAERS Safety Report 7518580-6 (Version None)
Quarter: 2011Q2

REPORT INFORMATION
  Report Type: 
  Country: None (occurrence: None)
  Receive Date: 20110602
  Receipt Date: 20110525
  Transmission Date: 20111010
  Serious: Yes (Hospitalization)
  Sender: FDA-Public Use
  Company Number: JP-NOVOPROD-328971

PATIENT
  Age: 77 Day
  Sex: Male

DRUGS (1)
  1. GLUCAGON [Suspect]
     Indication: HYPOGLYCAEMIA NEONATAL
     Dosage: UNK
     Route: 042

REACTIONS (2)
  - HEPATITIS NEONATAL [None]
  - METABOLIC ACIDOSIS [None]
